FAERS Safety Report 14532793 (Version 2)
Quarter: 2018Q1

REPORT INFORMATION
  Report Type: Report from Study
  Country: AU (occurrence: AU)
  Receive Date: 20180214
  Receipt Date: 20180227
  Transmission Date: 20180509
  Serious: Yes (Hospitalization)
  Sender: FDA-Public Use
  Company Number: AU-MYLANLABS-2017M1049728

PATIENT
  Age: 42 Year
  Sex: Female
  Weight: 85.4 kg

DRUGS (4)
  1. CLOZARIL [Suspect]
     Active Substance: CLOZAPINE
     Indication: SCHIZOPHRENIA
     Dosage: 500 MG, PM
     Route: 048
     Dates: start: 20120209, end: 20180114
  2. CLOZARIL [Suspect]
     Active Substance: CLOZAPINE
     Dosage: 350 MG, PM
     Route: 048
     Dates: start: 201801
  3. DIAZEPAM. [Concomitant]
     Active Substance: DIAZEPAM
     Indication: PRODUCT USED FOR UNKNOWN INDICATION
     Dosage: 2 MG, PM
     Route: 048
  4. COLOXYL WITH SENNA [Concomitant]
     Active Substance: DOCUSATE\SENNOSIDES
     Indication: PRODUCT USED FOR UNKNOWN INDICATION
     Dosage: UNK, BID
     Route: 048

REACTIONS (4)
  - Diastolic dysfunction [Unknown]
  - Intentional dose omission [Recovered/Resolved]
  - Mastectomy [Unknown]
  - Schizophrenia [Recovered/Resolved]

NARRATIVE: CASE EVENT DATE: 20130712
